APPROVED DRUG PRODUCT: VASOTEC
Active Ingredient: ENALAPRIL MALEATE
Strength: 2.5MG
Dosage Form/Route: TABLET;ORAL
Application: N018998 | Product #005 | TE Code: AB
Applicant: BAUSCH HEALTH US LLC
Approved: Jul 26, 1988 | RLD: Yes | RS: No | Type: RX